FAERS Safety Report 21748421 (Version 1)
Quarter: 2022Q4

REPORT INFORMATION
  Report Type: Spontaneous
  Country: US (occurrence: None)
  Receive Date: 20221218
  Receipt Date: 20221218
  Transmission Date: 20230112
  Serious: Yes (Life-Threatening, Hospitalization)
  Sender: FDA-Public Use
  Company Number: None

PATIENT
  Age: 42 Year
  Sex: Female
  Weight: 83.25 kg

DRUGS (6)
  1. OXYCONTIN [Suspect]
     Active Substance: OXYCODONE HYDROCHLORIDE
     Indication: Endometriosis
     Dosage: FREQUENCY : AS NEEDED;?
     Route: 048
     Dates: end: 20180922
  2. SUBOXONE [Concomitant]
     Active Substance: BUPRENORPHINE HYDROCHLORIDE\NALOXONE HYDROCHLORIDE
  3. ROXICODONE [Suspect]
     Active Substance: OXYCODONE HYDROCHLORIDE
     Indication: Endometriosis
     Dosage: FREQUENCY: AS NEEDED
     Route: 048
     Dates: end: 20180922
  4. MORPHINE SULFATE [Suspect]
     Active Substance: MORPHINE SULFATE
     Indication: Endometriosis
     Dosage: FREQUENCY : AS NEEDED
     Route: 048
     Dates: end: 20180922
  5. FENTANYL [Suspect]
     Active Substance: FENTANYL
     Indication: Endometriosis
     Dosage: FREQUENCY : AS NEEDED
     Route: 048
     Dates: end: 20180922
  6. FENTANYL [Suspect]
     Active Substance: FENTANYL
     Indication: Dysmenorrhoea

REACTIONS (3)
  - Suicide attempt [None]
  - Loss of employment [None]
  - Inappropriate schedule of product discontinuation [None]

NARRATIVE: CASE EVENT DATE: 20180922
